FAERS Safety Report 24324972 (Version 3)
Quarter: 2024Q4

REPORT INFORMATION
  Report Type: Report from Study
  Country: DE (occurrence: DE)
  Receive Date: 20240916
  Receipt Date: 20241225
  Transmission Date: 20250114
  Serious: Yes (Hospitalization, Other)
  Sender: ALEXION PHARMACEUTICALS
  Company Number: 2024A195478

PATIENT
  Age: 77 Year
  Weight: 66 kg

DRUGS (12)
  1. DURVALUMAB [Suspect]
     Active Substance: DURVALUMAB
     Indication: Hepatobiliary cancer
     Dosage: 1500 MILLIGRAM, SINGLE
  2. DURVALUMAB [Suspect]
     Active Substance: DURVALUMAB
     Dosage: 1500 MILLIGRAM, SINGLE
     Route: 042
  3. DURVALUMAB [Suspect]
     Active Substance: DURVALUMAB
     Dosage: 1500 MILLIGRAM, SINGLE
  4. DURVALUMAB [Suspect]
     Active Substance: DURVALUMAB
     Dosage: 1500 MILLIGRAM, SINGLE
     Route: 042
  5. DURVALUMAB [Suspect]
     Active Substance: DURVALUMAB
     Dosage: 1500 MILLIGRAM, SINGLE
  6. DURVALUMAB [Suspect]
     Active Substance: DURVALUMAB
     Dosage: 1500 MILLIGRAM, SINGLE
     Route: 042
  7. DURVALUMAB [Suspect]
     Active Substance: DURVALUMAB
     Dosage: 1500 MILLIGRAM, SINGLE
  8. DURVALUMAB [Suspect]
     Active Substance: DURVALUMAB
     Dosage: 1500 MILLIGRAM, SINGLE
     Route: 042
  9. TREMELIMUMAB [Suspect]
     Active Substance: TREMELIMUMAB
     Indication: Hepatobiliary cancer
     Dosage: 300 MILLIGRAM, SINGLE
  10. TREMELIMUMAB [Suspect]
     Active Substance: TREMELIMUMAB
     Dosage: 300 MILLIGRAM, SINGLE
     Route: 042
  11. TREMELIMUMAB [Suspect]
     Active Substance: TREMELIMUMAB
     Dosage: 300 MILLIGRAM, SINGLE
  12. TREMELIMUMAB [Suspect]
     Active Substance: TREMELIMUMAB
     Dosage: 300 MILLIGRAM, SINGLE
     Route: 042

REACTIONS (6)
  - Dehydration [Recovering/Resolving]
  - Gastritis [Not Recovered/Not Resolved]
  - Renal failure [Recovering/Resolving]
  - Urinary tract infection [Recovering/Resolving]
  - Rash maculo-papular [Not Recovered/Not Resolved]
  - Decreased appetite [Not Recovered/Not Resolved]
